FAERS Safety Report 4367672-1 (Version None)
Quarter: 2004Q2

REPORT INFORMATION
  Report Type: 
  Country: None (occurrence: None)
  Receive Date: 20040601
  Receipt Date: 20040219
  Transmission Date: 20050107
  Serious: Yes (Hospitalization)
  Sender: FDA-Public Use
  Company Number: JP-GLAXOSMITHKLINE-B0324106A

PATIENT
  Age: 62 Year
  Sex: Female
  Weight: 58 kg

DRUGS (11)
  1. VALTREX [Suspect]
     Indication: HERPES ZOSTER
     Dosage: 1000MG THREE TIMES PER DAY
     Route: 048
     Dates: start: 20040203, end: 20040206
  2. TORSEMIDE [Suspect]
     Indication: HYPERTENSION
     Dosage: 4MG PER DAY
     Route: 048
  3. FOIPAN [Concomitant]
     Dosage: 200MG PER DAY
     Route: 048
  4. CONIEL [Concomitant]
     Indication: HYPERTENSION
     Dosage: 8MG PER DAY
     Route: 048
  5. MEVALOTIN [Concomitant]
     Dosage: 10MG PER DAY
     Route: 048
  6. ACTOS [Concomitant]
     Indication: DIABETES MELLITUS
     Dosage: 30MG PER DAY
     Route: 048
  7. SELOKEN [Concomitant]
     Indication: HYPERTENSION
     Dosage: 120MG PER DAY
     Route: 048
  8. DIOVAN [Concomitant]
     Indication: HYPERTENSION
     Dosage: 80MG PER DAY
     Route: 048
  9. MARZULENE S [Concomitant]
     Indication: GASTRITIS
     Dosage: .67G PER DAY
     Route: 048
  10. BUFFERIN [Concomitant]
     Dosage: 81MG PER DAY
     Route: 048
  11. AMARYL [Concomitant]
     Indication: DIABETES MELLITUS
     Dosage: 2MG PER DAY
     Route: 048

REACTIONS (3)
  - NAUSEA [None]
  - PYREXIA [None]
  - RENAL IMPAIRMENT [None]
